FAERS Safety Report 8677535 (Version 10)
Quarter: 2014Q4

REPORT INFORMATION
  Report Type: Spontaneous
  Country: US (occurrence: US)
  Receive Date: 20120723
  Receipt Date: 20141031
  Transmission Date: 20150529
  Serious: Yes (Life-Threatening, Hospitalization, Congenital Anomaly, Other)
  Sender: FDA-Public Use
  Company Number: US-PFIZER INC-2012173654

PATIENT
  Sex: Male
  Weight: 1.8 kg

DRUGS (9)
  1. ZOLOFT [Suspect]
     Active Substance: SERTRALINE HYDROCHLORIDE
     Dosage: 100 MG, 2X/DAY
     Route: 064
     Dates: start: 20051206
  2. ZOLOFT [Suspect]
     Active Substance: SERTRALINE HYDROCHLORIDE
     Dosage: 100 MG, UNK
     Route: 064
     Dates: start: 20060404
  3. PHENYTOIN SODIUM. [Concomitant]
     Active Substance: PHENYTOIN SODIUM
     Dosage: 100 MG, UNK
     Route: 064
     Dates: start: 20060603
  4. ALBUTEROL. [Concomitant]
     Active Substance: ALBUTEROL
     Dosage: UNK, WEEKLY
     Route: 064
  5. DILANTIN [Concomitant]
     Active Substance: PHENYTOIN
     Dosage: 400 MG, 1X/DAY
     Route: 064
     Dates: start: 20061229
  6. ZOLOFT [Suspect]
     Active Substance: SERTRALINE HYDROCHLORIDE
     Indication: DEPRESSION
     Dosage: UNK
     Route: 064
  7. ZOLOFT [Suspect]
     Active Substance: SERTRALINE HYDROCHLORIDE
     Dosage: 200 MG, 1X/DAY
     Route: 064
     Dates: start: 20060307
  8. PRENATAL VITAMINS [Concomitant]
     Active Substance: VITAMINS
     Dosage: UNK
     Route: 064
     Dates: start: 20061229
  9. MEPHYTON [Concomitant]
     Active Substance: PHYTONADIONE
     Dosage: 5 MG, UNK
     Route: 064
     Dates: start: 20061228

REACTIONS (10)
  - Maternal exposure timing unspecified [Not Recovered/Not Resolved]
  - Pulmonary vein stenosis [Unknown]
  - Atrial septal defect [Unknown]
  - Dilatation ventricular [Unknown]
  - Patent ductus arteriosus [Unknown]
  - Premature baby [Unknown]
  - Atrial septal defect [Recovered/Resolved]
  - Heart disease congenital [Not Recovered/Not Resolved]
  - Tricuspid valve incompetence [Unknown]
  - Anomalous pulmonary venous connection [Unknown]

NARRATIVE: CASE EVENT DATE: 20070108
